FAERS Safety Report 12360451 (Version 2)
Quarter: 2016Q2

REPORT INFORMATION
  Report Type: Report from Study
  Country: FR (occurrence: FR)
  Receive Date: 20160512
  Receipt Date: 20160531
  Transmission Date: 20160815
  Serious: Yes (Hospitalization, Other)
  Sender: FDA-Public Use
  Company Number: FR-CELGENEUS-FRA-2014121845

PATIENT
  Age: 65 Year
  Sex: Male
  Weight: 80 kg

DRUGS (63)
  1. METHYLPREDNISOLONE. [Concomitant]
     Active Substance: METHYLPREDNISOLONE
     Indication: ASCITES
     Dosage: 1000 MILLIGRAM
     Route: 065
  2. MORPHINE [Concomitant]
     Active Substance: MORPHINE
     Indication: PRODUCT USED FOR UNKNOWN INDICATION
     Route: 041
     Dates: start: 20141124, end: 20141203
  3. XATRAL [Concomitant]
     Active Substance: ALFUZOSIN
     Indication: BENIGN PROSTATIC HYPERPLASIA
  4. PARACETAMOL [Concomitant]
     Active Substance: ACETAMINOPHEN
     Indication: ANALGESIC THERAPY
     Route: 041
     Dates: start: 20141118, end: 20141201
  5. MIDAZOLAM [Concomitant]
     Active Substance: MIDAZOLAM\MIDAZOLAM HYDROCHLORIDE
     Indication: PRODUCT USED FOR UNKNOWN INDICATION
     Route: 041
     Dates: start: 20141121, end: 20141203
  6. SPASFON [Concomitant]
     Active Substance: PHLOROGLUCINOL
     Indication: GASTROINTESTINAL INFECTION
     Route: 065
     Dates: start: 20141124
  7. DEBRIDAT [Concomitant]
     Active Substance: TRIMEBUTINE MALEATE
     Indication: FEBRILE BONE MARROW APLASIA
     Route: 065
  8. DEBRIDAT [Concomitant]
     Active Substance: TRIMEBUTINE MALEATE
     Indication: GASTROINTESTINAL INFECTION
     Route: 065
     Dates: start: 20141124
  9. VELCADE [Concomitant]
     Active Substance: BORTEZOMIB
     Indication: B-CELL LYMPHOMA
     Route: 065
     Dates: start: 20140917
  10. METHYLPREDNISOLONE. [Concomitant]
     Active Substance: METHYLPREDNISOLONE
     Route: 041
     Dates: start: 20141125, end: 20141201
  11. SIMVASTATIN. [Concomitant]
     Active Substance: SIMVASTATIN
     Indication: BLOOD CHOLESTEROL ABNORMAL
     Route: 048
     Dates: start: 20141119, end: 20141203
  12. CETIRIZINE [Concomitant]
     Active Substance: CETIRIZINE HYDROCHLORIDE
     Indication: PROPHYLAXIS
     Dosage: 10 MILLIGRAM
     Route: 048
     Dates: start: 20141121, end: 20141201
  13. HALDOL [Concomitant]
     Active Substance: HALOPERIDOL
     Dosage: 200 MILLIGRAM
     Route: 041
     Dates: start: 20141122, end: 20141125
  14. KARDEGIC [Concomitant]
     Active Substance: ASPIRIN LYSINE
     Indication: FEBRILE BONE MARROW APLASIA
     Route: 065
  15. MONICOR [Concomitant]
     Active Substance: ISOSORBIDE MONONITRATE
     Indication: PRODUCT USED FOR UNKNOWN INDICATION
     Route: 065
  16. INEXIUM [Concomitant]
     Active Substance: ESOMEPRAZOLE
     Indication: PRODUCT USED FOR UNKNOWN INDICATION
     Route: 065
  17. VELCADE [Concomitant]
     Active Substance: BORTEZOMIB
     Route: 065
     Dates: start: 20141010
  18. DEXAMETHASONE. [Concomitant]
     Active Substance: DEXAMETHASONE
     Indication: B-CELL LYMPHOMA
     Route: 065
     Dates: start: 20140917
  19. DEXAMETHASONE. [Concomitant]
     Active Substance: DEXAMETHASONE
     Route: 065
     Dates: start: 20141010
  20. XATRAL [Concomitant]
     Active Substance: ALFUZOSIN
     Indication: URINARY RETENTION
     Dosage: 10 MILLIGRAM
     Route: 048
     Dates: start: 20141119, end: 20141203
  21. TRIMEBUTINE [Concomitant]
     Active Substance: TRIMEBUTINE
     Indication: PROPHYLAXIS
     Dosage: SACHET
     Route: 048
     Dates: start: 20141118, end: 20141126
  22. PHLOROGLUCINOL [Concomitant]
     Active Substance: PHLOROGLUCINOL
     Route: 048
     Dates: start: 20141201, end: 20141203
  23. LAROXYL [Concomitant]
     Active Substance: AMITRIPTYLINE
     Indication: PROPHYLAXIS
     Route: 048
     Dates: start: 20141124, end: 20141201
  24. SELOKEN [Concomitant]
     Active Substance: METOPROLOL
     Indication: PRODUCT USED FOR UNKNOWN INDICATION
     Route: 065
  25. AZACTAM [Concomitant]
     Active Substance: AZTREONAM
     Indication: FEBRILE BONE MARROW APLASIA
     Route: 041
     Dates: start: 20140816, end: 20141203
  26. TRIMEBUTINE [Concomitant]
     Active Substance: TRIMEBUTINE
     Route: 048
     Dates: start: 20141201, end: 20141203
  27. EUPANTOL [Concomitant]
     Active Substance: PANTOPRAZOLE SODIUM
     Indication: PEPTIC ULCER
     Route: 048
     Dates: start: 20141118, end: 20141126
  28. HALDOL [Concomitant]
     Active Substance: HALOPERIDOL
     Indication: PROPHYLAXIS
     Route: 041
     Dates: start: 20141121, end: 20141201
  29. GA101 [Suspect]
     Active Substance: OBINUTUZUMAB
     Indication: DIFFUSE LARGE B-CELL LYMPHOMA
     Route: 065
     Dates: start: 20141128, end: 20141128
  30. ASPIRIN. [Concomitant]
     Active Substance: ASPIRIN
     Indication: PRODUCT USED FOR UNKNOWN INDICATION
     Route: 065
  31. OXYNORM [Concomitant]
     Active Substance: OXYCODONE HYDROCHLORIDE
     Indication: PRODUCT USED FOR UNKNOWN INDICATION
     Route: 041
  32. METHYLPREDNISOLONE. [Concomitant]
     Active Substance: METHYLPREDNISOLONE
     Dosage: 150 MILLIGRAM
     Route: 041
     Dates: start: 20141124, end: 20141125
  33. ACUPAN [Concomitant]
     Active Substance: NEFOPAM HYDROCHLORIDE
     Indication: ANALGESIC THERAPY
     Route: 041
     Dates: start: 20141118, end: 20141203
  34. ACUPAN [Concomitant]
     Active Substance: NEFOPAM HYDROCHLORIDE
     Indication: FEBRILE BONE MARROW APLASIA
     Route: 065
     Dates: start: 20141124
  35. MIDAZOLAM [Concomitant]
     Active Substance: MIDAZOLAM\MIDAZOLAM HYDROCHLORIDE
     Route: 041
     Dates: start: 20141125, end: 20141202
  36. ELECTROLYTES WITH CARBOHYDRATES [Concomitant]
     Indication: LAXATIVE SUPPORTIVE CARE
     Route: 041
     Dates: start: 20141124, end: 20141127
  37. REVLIMID [Suspect]
     Active Substance: LENALIDOMIDE
     Indication: DIFFUSE LARGE B-CELL LYMPHOMA
     Dosage: 20 MILLIGRAM
     Route: 048
     Dates: start: 20141121, end: 20141204
  38. FRESUBIN [Concomitant]
     Active Substance: AMINO ACIDS\DEXTROSE\ELECTROLYTES NOS\SOYBEAN OIL\VITAMINS
     Indication: PRODUCT USED FOR UNKNOWN INDICATION
     Route: 065
  39. AZACTAM [Concomitant]
     Active Substance: AZTREONAM
     Indication: GASTROINTESTINAL INFECTION
     Route: 065
     Dates: start: 20141124
  40. PHLOROGLUCINOL [Concomitant]
     Active Substance: PHLOROGLUCINOL
     Indication: PROPHYLAXIS
     Route: 048
     Dates: start: 20141118, end: 20141126
  41. ZELITREX [Concomitant]
     Active Substance: VALACYCLOVIR HYDROCHLORIDE
     Indication: PROPHYLAXIS
     Route: 048
     Dates: start: 20141118, end: 20141126
  42. OLIMEL [Concomitant]
     Active Substance: AMINO ACIDS\DEXTROSE\SOYBEAN OIL
     Indication: PRODUCT USED FOR UNKNOWN INDICATION
     Dosage: 1 LITERS
     Route: 041
     Dates: start: 20141118, end: 20141203
  43. LOVENOX [Concomitant]
     Active Substance: ENOXAPARIN SODIUM
     Route: 058
     Dates: start: 20141125, end: 20141125
  44. KARDEGIC [Concomitant]
     Active Substance: ASPIRIN LYSINE
     Indication: GASTROINTESTINAL INFECTION
     Route: 065
     Dates: start: 20141124
  45. MORPHINE [Concomitant]
     Active Substance: MORPHINE
     Route: 041
     Dates: start: 20141124, end: 20141203
  46. TRIMEBUTINE [Concomitant]
     Active Substance: TRIMEBUTINE
     Route: 065
  47. PARACETAMOL [Concomitant]
     Active Substance: ACETAMINOPHEN
     Route: 048
     Dates: start: 20141201, end: 20141203
  48. PLITICAN [Concomitant]
     Active Substance: ALIZAPRIDE HYDROCHLORIDE
     Indication: GASTROINTESTINAL MOTILITY DISORDER
     Route: 041
     Dates: start: 20141120, end: 20141203
  49. TIORFAN [Concomitant]
     Active Substance: RACECADOTRIL
     Indication: PROPHYLAXIS
     Dosage: 30 MILLIGRAM
     Route: 048
     Dates: start: 20141120, end: 20141126
  50. SMECTA [Concomitant]
     Active Substance: MONTMORILLONITE
     Indication: PRODUCT USED FOR UNKNOWN INDICATION
     Dosage: SACHET
     Route: 048
     Dates: start: 20141120, end: 20141126
  51. LOVENOX [Concomitant]
     Active Substance: ENOXAPARIN SODIUM
     Indication: PROPHYLAXIS
     Route: 058
     Dates: start: 20141121, end: 20141201
  52. AZTREONAM. [Concomitant]
     Active Substance: AZTREONAM
     Indication: ANTIBIOTIC PROPHYLAXIS
     Dosage: 30 MILLIGRAM
     Route: 041
     Dates: start: 20141124, end: 20141203
  53. SPASFON [Concomitant]
     Active Substance: PHLOROGLUCINOL
     Indication: PAIN
     Route: 048
     Dates: start: 20141203
  54. SPASFON [Concomitant]
     Active Substance: PHLOROGLUCINOL
     Route: 048
     Dates: start: 20141118, end: 20141126
  55. ZYVOXID [Concomitant]
     Active Substance: LINEZOLID
     Indication: FEBRILE BONE MARROW APLASIA
     Route: 065
     Dates: start: 20140816
  56. METHYLPREDNISOLONE. [Concomitant]
     Active Substance: METHYLPREDNISOLONE
     Route: 041
     Dates: start: 20141202, end: 20141202
  57. ZELITREX [Concomitant]
     Active Substance: VALACYCLOVIR HYDROCHLORIDE
     Route: 048
     Dates: start: 20141202, end: 20141203
  58. ACUPAN [Concomitant]
     Active Substance: NEFOPAM HYDROCHLORIDE
     Indication: GASTROINTESTINAL INFECTION
     Route: 065
  59. EUPANTOL [Concomitant]
     Active Substance: PANTOPRAZOLE SODIUM
     Route: 048
     Dates: start: 20141202, end: 20141203
  60. EUPANTOL [Concomitant]
     Active Substance: PANTOPRAZOLE SODIUM
     Route: 048
     Dates: start: 20141119, end: 20141126
  61. TRANSIPEG [Concomitant]
     Active Substance: POLYETHYLENE GLYCOL 3350
     Indication: LAXATIVE SUPPORTIVE CARE
     Dosage: SACHET
     Route: 048
     Dates: start: 20141123, end: 20141126
  62. SPASFON [Concomitant]
     Active Substance: PHLOROGLUCINOL
     Indication: FEBRILE BONE MARROW APLASIA
     Route: 065
  63. DEBRIDAT [Concomitant]
     Active Substance: TRIMEBUTINE MALEATE
     Indication: PAIN
     Route: 048
     Dates: start: 20141118, end: 20141126

REACTIONS (1)
  - Tumour flare [Not Recovered/Not Resolved]

NARRATIVE: CASE EVENT DATE: 20141124
